FAERS Safety Report 9773712 (Version 3)
Quarter: 2014Q1

REPORT INFORMATION
  Report Type: Spontaneous
  Country: IT (occurrence: None)
  Receive Date: 20131218
  Receipt Date: 20140311
  Transmission Date: 20141002
  Serious: Yes (Hospitalization)
  Sender: FDA-Public Use
  Company Number: 2013STPI000510

PATIENT
  Age: 7 Year
  Sex: Male

DRUGS (1)
  1. CARNITOR [Suspect]
     Indication: VERY LONG-CHAIN ACYL-COENZYME A DEHYDROGENASE DEFICIENCY
     Route: 048
     Dates: start: 20120711, end: 201208

REACTIONS (4)
  - Rhabdomyolysis [None]
  - Nasopharyngitis [None]
  - Hyperthermia [None]
  - Hypophagia [None]
